FAERS Safety Report 21026542 (Version 5)
Quarter: 2022Q3

REPORT INFORMATION
  Report Type: Spontaneous
  Country: DO (occurrence: DO)
  Receive Date: 20220630
  Receipt Date: 20220927
  Transmission Date: 20221027
  Serious: Yes (Death, Life-Threatening, Hospitalization, Other)
  Sender: FDA-Public Use
  Company Number: DO-ASTELLAS-2022US023171

PATIENT
  Age: 74 Year
  Sex: Male

DRUGS (1)
  1. XTANDI [Suspect]
     Active Substance: ENZALUTAMIDE
     Indication: Prostate cancer
     Route: 048
     Dates: end: 20220419

REACTIONS (8)
  - Malignant neoplasm progression [Fatal]
  - Mobility decreased [Not Recovered/Not Resolved]
  - Catheter site haemorrhage [Recovered/Resolved]
  - Catheter site haemorrhage [Recovered/Resolved]
  - Prostatitis [Not Recovered/Not Resolved]
  - Thrombosis in device [Unknown]
  - Infection [Unknown]
  - Product availability issue [Unknown]

NARRATIVE: CASE EVENT DATE: 20220613
